FAERS Safety Report 19588808 (Version 1)
Quarter: 2021Q3

REPORT INFORMATION
  Report Type: Spontaneous
  Country: FR (occurrence: FR)
  Receive Date: 20210721
  Receipt Date: 20210721
  Transmission Date: 20211014
  Serious: Yes (Hospitalization)
  Sender: FDA-Public Use
  Company Number: FR-TEVA-2021-FR-1933932

PATIENT
  Age: 75 Year
  Sex: Male
  Weight: 68 kg

DRUGS (5)
  1. ONDANSETRON [Concomitant]
     Active Substance: ONDANSETRON
  2. CALCIUM (LEVOFOLINATE  DE) [Suspect]
     Active Substance: LEVOLEUCOVORIN CALCIUM
     Indication: RECTAL NEOPLASM
     Dosage: 340MG
     Route: 065
     Dates: start: 20210427, end: 20210427
  3. COVERSYL [Concomitant]
     Active Substance: PERINDOPRIL
  4. FLUOROURACILE [Suspect]
     Active Substance: FLUOROURACIL
     Indication: RECTAL NEOPLASM
     Dosage: 4050MG
     Route: 065
     Dates: start: 20210427, end: 20210427
  5. OXALIPLATINE [Suspect]
     Active Substance: OXALIPLATIN
     Indication: RECTAL NEOPLASM
     Dosage: 145MG
     Route: 065
     Dates: start: 20210427, end: 20210427

REACTIONS (4)
  - Leukopenia [Recovered/Resolved]
  - Diarrhoea [Recovered/Resolved]
  - Alopecia [Not Recovered/Not Resolved]
  - Asthenia [Recovered/Resolved]

NARRATIVE: CASE EVENT DATE: 20210502
